FAERS Safety Report 13698346 (Version 1)
Quarter: 2017Q2

REPORT INFORMATION
  Report Type: Spontaneous
  Country: FR (occurrence: FR)
  Receive Date: 20170628
  Receipt Date: 20170628
  Transmission Date: 20170830
  Serious: Yes (Other)
  Sender: FDA-Public Use
  Company Number: FR-BAYER-2017-121575

PATIENT
  Age: 51 Year
  Sex: Female
  Weight: 75 kg

DRUGS (1)
  1. MIRENA [Suspect]
     Active Substance: LEVONORGESTREL
     Indication: CONTRACEPTION
     Dosage: 20 MCG/24HR, CONT
     Route: 015
     Dates: start: 20070709

REACTIONS (22)
  - Vertigo [Unknown]
  - Loss of libido [Unknown]
  - Vaginal discharge [Unknown]
  - Ovarian cyst [Unknown]
  - Anxiety [Unknown]
  - Mood altered [Unknown]
  - Diarrhoea [Unknown]
  - Headache [Unknown]
  - Alopecia [Unknown]
  - Breast cyst [Unknown]
  - Irritability [Unknown]
  - Goitre [Unknown]
  - Fatigue [Unknown]
  - Dry skin [Unknown]
  - Urinary tract infection [Unknown]
  - Skin irritation [Unknown]
  - Vulvovaginal mycotic infection [Unknown]
  - Abdominal distension [Unknown]
  - Weight increased [Unknown]
  - Depression [Unknown]
  - Constipation [Unknown]
  - Nervousness [Unknown]

NARRATIVE: CASE EVENT DATE: 20091215
